FAERS Safety Report 9155747 (Version 1)
Quarter: 2013Q1

REPORT INFORMATION
  Report Type: Spontaneous
  Country: US (occurrence: US)
  Receive Date: 20130311
  Receipt Date: 20130311
  Transmission Date: 20140127
  Serious: No
  Sender: FDA-Public Use
  Company Number: US-ASTRAZENECA-2013SE07913

PATIENT
  Age: 43 Year
  Sex: Female
  Weight: 47.6 kg

DRUGS (9)
  1. PRILOSEC [Suspect]
     Indication: GASTROOESOPHAGEAL REFLUX DISEASE
     Route: 048
     Dates: start: 2012, end: 20130129
  2. PRILOSEC [Suspect]
     Indication: IRRITABLE BOWEL SYNDROME
     Route: 048
     Dates: start: 2012, end: 20130129
  3. PRILOSEC [Suspect]
     Indication: GASTROOESOPHAGEAL REFLUX DISEASE
     Route: 048
     Dates: start: 20130129
  4. PRILOSEC [Suspect]
     Indication: IRRITABLE BOWEL SYNDROME
     Route: 048
     Dates: start: 20130129
  5. CODEINE [Suspect]
     Route: 065
  6. ALEVE [Concomitant]
     Indication: MUSCULOSKELETAL PAIN
     Dosage: AS PER REQUIRED
     Route: 048
  7. IBUPROFEN [Concomitant]
     Indication: MUSCULOSKELETAL PAIN
     Dosage: AS PER REQUIRED
     Route: 048
  8. MULTIVITIMAN [Concomitant]
     Indication: SUPPLEMENTATION THERAPY
     Route: 048
  9. FISH OIL [Concomitant]
     Indication: SUPPLEMENTATION THERAPY
     Route: 048

REACTIONS (10)
  - Sleep disorder due to general medical condition, insomnia type [Unknown]
  - Weight decreased [Unknown]
  - Nasopharyngitis [Recovered/Resolved]
  - Aphonia [Unknown]
  - Gastrooesophageal reflux disease [Unknown]
  - Therapeutic response unexpected [Unknown]
  - Diarrhoea [Not Recovered/Not Resolved]
  - Intentional drug misuse [Unknown]
  - Drug ineffective [Unknown]
  - Drug hypersensitivity [Unknown]
